FAERS Safety Report 15305208 (Version 2)
Quarter: 2020Q2

REPORT INFORMATION
  Report Type: Spontaneous
  Country: FR (occurrence: FR)
  Receive Date: 20180822
  Receipt Date: 20200423
  Transmission Date: 20200713
  Serious: Yes (Hospitalization)
  Sender: FDA-Public Use
  Company Number: FR-TEVA-2018-FR-945564

PATIENT
  Age: 50 Year
  Sex: Male

DRUGS (7)
  1. NIMBEX [Concomitant]
     Active Substance: CISATRACURIUM BESYLATE
     Indication: NEUROMUSCULAR BLOCKING THERAPY
     Dosage: UNKNOWN
     Route: 042
     Dates: start: 20180704
  2. PANTOPRAZOLE [Suspect]
     Active Substance: PANTOPRAZOLE
     Indication: PROPHYLAXIS
     Dosage: UNKNOWN
     Route: 042
     Dates: start: 20180714, end: 20180718
  3. TIENAM [Suspect]
     Active Substance: CILASTATIN SODIUM\IMIPENEM
     Indication: LUNG DISORDER
     Route: 042
     Dates: start: 20180714, end: 20180719
  4. SUFENTANIL [Concomitant]
     Active Substance: SUFENTANIL
     Indication: SEDATION
     Dosage: UNKNOWN
     Route: 042
     Dates: start: 20180704
  5. PENTOTHAL [Concomitant]
     Active Substance: THIOPENTAL SODIUM
     Indication: SEDATION
     Dosage: UNKNOWN
     Route: 042
     Dates: start: 20180705, end: 20180711
  6. AUGMENTIN [Suspect]
     Active Substance: AMOXICILLIN\CLAVULANATE POTASSIUM
     Indication: LUNG DISORDER
     Dosage: UNKNOWN
     Route: 042
     Dates: start: 20180710, end: 20180717
  7. MIDAZOLAM. [Concomitant]
     Active Substance: MIDAZOLAM
     Indication: SEDATION
     Dosage: UNKNOWN
     Route: 041
     Dates: start: 20180704

REACTIONS (1)
  - Neutropenia [Recovered/Resolved]

NARRATIVE: CASE EVENT DATE: 20180722
